FAERS Safety Report 5656235-3 (Version None)
Quarter: 2008Q1

REPORT INFORMATION
  Report Type: 
  Country: None (occurrence: None)
  Receive Date: 20080305
  Receipt Date: 20071210
  Transmission Date: 20080703
  Serious: Yes (Other)
  Sender: FDA-Public Use
  Company Number: 2008AL001115

PATIENT
  Age: 31 Year
  Sex: Female

DRUGS (4)
  1. DIAZEPAM TAB [Suspect]
     Indication: INTERVERTEBRAL DISC PROTRUSION
     Dosage: 5 MG; PRN; PO
     Route: 048
     Dates: start: 20070101, end: 20071008
  2. ZALDIAR [Concomitant]
  3. ARTHROTEC [Concomitant]
  4. LYRICA [Concomitant]

REACTIONS (2)
  - ABORTION SPONTANEOUS [None]
  - DRUG EXPOSURE BEFORE PREGNANCY [None]
